FAERS Safety Report 10502480 (Version 2)
Quarter: 2014Q4

REPORT INFORMATION
  Report Type: Report from Study
  Country: CZ (occurrence: CZ)
  Receive Date: 20141007
  Receipt Date: 20141106
  Transmission Date: 20150528
  Serious: Yes (Death, Other)
  Sender: FDA-Public Use
  Company Number: PHHY2014CZ129783

PATIENT
  Age: 78 Year
  Sex: Male

DRUGS (1)
  1. AFINITOR [Suspect]
     Active Substance: EVEROLIMUS
     Indication: METASTATIC RENAL CELL CARCINOMA
     Dosage: 10 MG
     Route: 065
     Dates: start: 20120829, end: 20130108

REACTIONS (3)
  - Second primary malignancy [Unknown]
  - Metastatic renal cell carcinoma [Fatal]
  - Prostate cancer [Unknown]

NARRATIVE: CASE EVENT DATE: 20140719
